FAERS Safety Report 12843937 (Version 2)
Quarter: 2016Q4

REPORT INFORMATION
  Report Type: Spontaneous
  Country: GB (occurrence: GB)
  Receive Date: 20161013
  Receipt Date: 20161125
  Transmission Date: 20170207
  Serious: Yes (Other)
  Sender: FDA-Public Use
  Company Number: GB-009507513-1610GBR003679

PATIENT
  Age: 47 Year
  Sex: Female

DRUGS (1)
  1. NEXPLANON [Suspect]
     Active Substance: ETONOGESTREL
     Dosage: 1 DF, UNK
     Route: 059
     Dates: start: 20140317

REACTIONS (3)
  - Weight decreased [Unknown]
  - Menorrhagia [Unknown]
  - Gastric bypass [Unknown]

NARRATIVE: CASE EVENT DATE: 20140317
